FAERS Safety Report 9162868 (Version 1)
Quarter: 2013Q1

REPORT INFORMATION
  Report Type: Report from Study
  Country: US (occurrence: US)
  Receive Date: 20130314
  Receipt Date: 20130314
  Transmission Date: 20140127
  Serious: Yes (Death)
  Sender: FDA-Public Use
  Company Number: US-SANOFI-AVENTIS-2013SA025773

PATIENT
  Sex: 0

DRUGS (3)
  1. OXALIPLATIN [Suspect]
     Indication: HEAD AND NECK CANCER
     Dosage: ON DAY 1
     Route: 065
  2. FLUOROURACIL [Suspect]
     Indication: HEAD AND NECK CANCER
     Dosage: OVER 96 HRS ON DAY1
     Route: 042
  3. CETUXIMAB [Suspect]
     Indication: HEAD AND NECK CANCER
     Dosage: CONTINUOUS 96 HR INFUSION ON DAY 1
     Route: 042

REACTIONS (1)
  - Death [Fatal]
